FAERS Safety Report 11703533 (Version 2)
Quarter: 2015Q4

REPORT INFORMATION
  Report Type: Spontaneous
  Country: BR (occurrence: BR)
  Receive Date: 20151105
  Receipt Date: 20151117
  Transmission Date: 20160304
  Serious: Yes (Disabling)
  Sender: FDA-Public Use
  Company Number: PHHY2015BR144647

PATIENT
  Sex: Female
  Weight: 49.5 kg

DRUGS (6)
  1. SINVALIP [Concomitant]
     Indication: PRODUCT USED FOR UNKNOWN INDICATION
     Route: 065
  2. RIVOTRIL [Concomitant]
     Active Substance: CLONAZEPAM
     Indication: SLEEP DISORDER
     Dosage: 0.5 DF, UNK
     Route: 065
  3. DIOVAN AMLO [Suspect]
     Active Substance: AMLODIPINE\VALSARTAN
     Dosage: 1 DF (TABLET OF 160/5 MG), QD (AT 11:30 AM)
     Route: 048
  4. DIOVAN AMLO [Suspect]
     Active Substance: AMLODIPINE\VALSARTAN
     Indication: HYPERTENSION
     Dosage: 1 DF (TABLET OF 320/10 MG), QD (AT 11:30 PM)
     Route: 048
  5. GALVUS [Suspect]
     Active Substance: VILDAGLIPTIN
     Indication: DIABETES MELLITUS
     Dosage: 1 DF, QD (AT 1:00 PM)
     Route: 048
  6. ABLOK [Concomitant]
     Active Substance: ATENOLOL
     Indication: BLOOD PRESSURE ABNORMAL
     Route: 065

REACTIONS (15)
  - Labyrinthitis [Unknown]
  - Hypotension [Not Recovered/Not Resolved]
  - Asthenia [Unknown]
  - Repetitive strain injury [Unknown]
  - Depression [Unknown]
  - Fear [Unknown]
  - Fibromyalgia [Unknown]
  - Musculoskeletal chest pain [Not Recovered/Not Resolved]
  - Muscular weakness [Not Recovered/Not Resolved]
  - Affective disorder [Unknown]
  - Insomnia [Unknown]
  - Tremor [Unknown]
  - Panic disorder [Unknown]
  - Visual impairment [Unknown]
  - Blood glucose increased [Unknown]

NARRATIVE: CASE EVENT DATE: 2015
